FAERS Safety Report 18173895 (Version 1)
Quarter: 2020Q3

REPORT INFORMATION
  Report Type: Report from Study
  Country: FR (occurrence: FR)
  Receive Date: 20200820
  Receipt Date: 20200820
  Transmission Date: 20201103
  Serious: Yes (Hospitalization)
  Sender: FDA-Public Use
  Company Number: FR-CELLTRION INC.-2020FR025278

PATIENT

DRUGS (2)
  1. TRUXIMA [Suspect]
     Active Substance: RITUXIMAB-ABBS
     Indication: DIFFUSE LARGE B-CELL LYMPHOMA
     Dosage: 700 MG
     Route: 042
     Dates: start: 20180213
  2. TRUXIMA [Suspect]
     Active Substance: RITUXIMAB-ABBS
     Dosage: 700 MG
     Route: 042
     Dates: start: 20180313, end: 20180410

REACTIONS (6)
  - Pyrexia [Recovered/Resolved]
  - Chills [Recovered/Resolved]
  - Hypotension [Recovered/Resolved]
  - Bacteraemia [Recovered/Resolved]
  - Seizure [Recovered/Resolved]
  - Febrile neutropenia [Recovered/Resolved]

NARRATIVE: CASE EVENT DATE: 20180410
